FAERS Safety Report 5695014-8 (Version None)
Quarter: 2008Q2

REPORT INFORMATION
  Report Type: 
  Country: None (occurrence: None)
  Receive Date: 20080404
  Receipt Date: 20080331
  Transmission Date: 20081010
  Serious: Yes (Hospitalization, Other)
  Sender: FDA-Public Use
  Company Number: JP-PFIZER INC-2008012181

PATIENT
  Sex: Female
  Weight: 50 kg

DRUGS (12)
  1. SOLANAX [Suspect]
     Indication: PAIN
     Route: 048
     Dates: start: 20071225, end: 20080110
  2. SOLANAX [Suspect]
     Indication: ANXIETY
  3. ZOLOFT [Suspect]
     Indication: DEPRESSIVE SYMPTOM
     Route: 048
     Dates: start: 20071219, end: 20080110
  4. ZOLOFT [Suspect]
     Indication: SOMATOFORM DISORDER
  5. AMLODIN [Suspect]
     Indication: HYPERTENSION
     Dosage: DAILY DOSE:2.5MG
     Route: 048
  6. LOXONIN [Suspect]
     Indication: PAIN
     Route: 048
     Dates: start: 20071214, end: 20080110
  7. COLONEL [Suspect]
     Indication: DIARRHOEA
     Dosage: DAILY DOSE:1500MCG
     Route: 048
     Dates: start: 20071225, end: 20080110
  8. FAMOTIDINE [Suspect]
     Indication: EPIGASTRIC DISCOMFORT
     Route: 048
     Dates: start: 20071225, end: 20080110
  9. NEUROTROPIN [Concomitant]
     Indication: PAIN
     Route: 048
     Dates: start: 20071225, end: 20080110
  10. MYSLEE [Concomitant]
     Indication: INSOMNIA
     Dosage: DAILY DOSE:5MG
     Route: 048
     Dates: start: 20071225, end: 20080110
  11. LENDORMIN [Concomitant]
     Indication: INSOMNIA
     Dosage: DAILY DOSE:.25MG
     Route: 048
     Dates: start: 20071214, end: 20080110
  12. NAUZELIN [Concomitant]
     Indication: NAUSEA
     Dosage: DAILY DOSE:20MG
     Route: 048
     Dates: start: 20071219, end: 20080110

REACTIONS (3)
  - PYELONEPHRITIS ACUTE [None]
  - RENAL FAILURE ACUTE [None]
  - SEPSIS [None]
